FAERS Safety Report 19093567 (Version 1)
Quarter: 2021Q2

REPORT INFORMATION
  Report Type: Report from Study
  Country: JP (occurrence: JP)
  Receive Date: 20210405
  Receipt Date: 20210405
  Transmission Date: 20210717
  Serious: Yes (Death, Hospitalization)
  Sender: FDA-Public Use
  Company Number: JP-INCYTE CORPORATION-2020IN013336

PATIENT

DRUGS (6)
  1. BAYASPIRIN [Concomitant]
     Active Substance: ASPIRIN
     Indication: MYELOFIBROSIS
     Dosage: 100 MG
     Route: 048
     Dates: end: 20161004
  2. JAKAVI [Suspect]
     Active Substance: RUXOLITINIB
     Dosage: 10 MG, BID
     Route: 048
     Dates: start: 20160926, end: 20161103
  3. JAKAVI [Suspect]
     Active Substance: RUXOLITINIB
     Dosage: UNK, BID
     Route: 048
     Dates: start: 20161226
  4. JAKAVI [Suspect]
     Active Substance: RUXOLITINIB
     Dosage: 10 MG, BID
     Route: 048
     Dates: end: 20180704
  5. JAKAVI [Suspect]
     Active Substance: RUXOLITINIB
     Dosage: 10 MG, BID
     Route: 048
     Dates: start: 20161121, end: 20161226
  6. JAKAVI [Suspect]
     Active Substance: RUXOLITINIB
     Indication: MYELOFIBROSIS
     Dosage: 5 MG, BID
     Route: 048
     Dates: start: 20160912, end: 20160926

REACTIONS (2)
  - Second primary malignancy [Not Recovered/Not Resolved]
  - Platelet count decreased [Fatal]

NARRATIVE: CASE EVENT DATE: 20180528
